FAERS Safety Report 4471790-7 (Version None)
Quarter: 2004Q4

REPORT INFORMATION
  Report Type: 
  Country: None (occurrence: None)
  Receive Date: 20041006
  Receipt Date: 20040922
  Transmission Date: 20050328
  Serious: Yes (Hospitalization)
  Sender: FDA-Public Use
  Company Number: 2004SE04544

PATIENT
  Age: 73 Year
  Sex: Male

DRUGS (2)
  1. ATACAND [Suspect]
     Indication: ESSENTIAL HYPERTENSION
     Dosage: 8 MG QD PO
     Route: 048
     Dates: start: 20040613, end: 20040720
  2. FLUITRAN [Suspect]
     Indication: ESSENTIAL HYPERTENSION
     Dosage: 1 MG DAILY PO
     Route: 048
     Dates: start: 20040613, end: 20040720

REACTIONS (1)
  - GASTRIC ULCER HAEMORRHAGE [None]
